FAERS Safety Report 5837658-6 (Version None)
Quarter: 2008Q3

REPORT INFORMATION
  Report Type: 
  Country: None (occurrence: None)
  Receive Date: 20080731
  Receipt Date: 20080616
  Transmission Date: 20090109
  Serious: No
  Sender: FDA-Public Use
  Company Number: US200806003891

PATIENT
  Age: 48 Year
  Sex: Female

DRUGS (2)
  1. BYETTA [Suspect]
     Indication: METABOLIC SYNDROME
     Dosage: 5 UG, 2/D, SUBCUTANEOUS
     Route: 058
     Dates: start: 20080601
  2. METFORMIN HCL [Concomitant]

REACTIONS (3)
  - ANOREXIA [None]
  - FEELING ABNORMAL [None]
  - INJECTION SITE EXTRAVASATION [None]
